FAERS Safety Report 6944650-7 (Version None)
Quarter: 2010Q3

REPORT INFORMATION
  Report Type: 
  Country: None (occurrence: None)
  Receive Date: 20100827
  Receipt Date: 20100819
  Transmission Date: 20110219
  Serious: Yes (Hospitalization, Other)
  Sender: FDA-Public Use
  Company Number: PHHY2010DE23943

PATIENT
  Sex: Male
  Weight: 102 kg

DRUGS (8)
  1. ALISKIREN ALI+ [Suspect]
     Indication: HYPERTENSION
     Dosage: 300 MG/D
  2. ORAL ANTIDIABETICS [Concomitant]
     Indication: DIABETES MELLITUS
  3. ACE INHIBITOR NOS [Concomitant]
     Dosage: 20 MG/D
  4. ANTIHYPERTENSIVES [Concomitant]
     Dosage: UNK
     Dates: start: 20090223
  5. BETA BLOCKING AGENTS [Concomitant]
     Dosage: 95 MG/D
  6. CALCIUM CHANNEL BLOCKERS [Concomitant]
     Dosage: 20 MG/D
  7. DIURETICS [Concomitant]
     Dosage: 12.5 MG/D
  8. PLATELETS [Concomitant]
     Dosage: 100 MG/D

REACTIONS (4)
  - ARTERIOGRAM CORONARY [None]
  - BLOOD PRESSURE SYSTOLIC INCREASED [None]
  - CORONARY ARTERY BYPASS [None]
  - DYSPNOEA [None]
